FAERS Safety Report 5945444-1 (Version None)
Quarter: 2008Q4

REPORT INFORMATION
  Report Type: 
  Country: None (occurrence: None)
  Receive Date: 20081107
  Receipt Date: 20081031
  Transmission Date: 20090506
  Serious: Yes (Other)
  Sender: FDA-Public Use
  Company Number: JP-ALLERGAN-0814032US

PATIENT

DRUGS (2)
  1. ALESION TABLET [Suspect]
     Indication: DRUG USE FOR UNKNOWN INDICATION
     Dosage: 30 TAB, SINGLE
     Route: 048
  2. ALEROFF [Suspect]
     Indication: DRUG USE FOR UNKNOWN INDICATION
     Dosage: 78 TAB, SINGLE
     Route: 048

REACTIONS (2)
  - LOSS OF CONSCIOUSNESS [None]
  - OVERDOSE [None]
